FAERS Safety Report 23378595 (Version 1)
Quarter: 2024Q1

REPORT INFORMATION
  Report Type: Spontaneous
  Country: US (occurrence: None)
  Receive Date: 20240106
  Receipt Date: 20240106
  Transmission Date: 20240409
  Serious: Yes (Hospitalization, Other)
  Sender: FDA-Public Use
  Company Number: None

PATIENT
  Age: 38 Year
  Sex: Female

DRUGS (1)
  1. STELARA [Suspect]
     Active Substance: USTEKINUMAB
     Indication: Crohn^s disease
     Dosage: 90MG Q4W SUBCUTANEOUS?
     Route: 058

REACTIONS (4)
  - Hysterectomy [None]
  - Intestinal resection [None]
  - Therapy interrupted [None]
  - Suspected COVID-19 [None]
